FAERS Safety Report 16917621 (Version 13)
Quarter: 2025Q1

REPORT INFORMATION
  Report Type: Report from Study
  Country: CA (occurrence: CA)
  Receive Date: 20191015
  Receipt Date: 20250318
  Transmission Date: 20250409
  Serious: Yes (Hospitalization, Other)
  Sender: TAKEDA
  Company Number: CA-TAKEDA-2018TUS007306

PATIENT
  Sex: Female
  Weight: 62.7 kg

DRUGS (22)
  1. VEDOLIZUMAB [Suspect]
     Active Substance: VEDOLIZUMAB
     Indication: Crohn^s disease
  2. VEDOLIZUMAB [Suspect]
     Active Substance: VEDOLIZUMAB
  3. VEDOLIZUMAB [Suspect]
     Active Substance: VEDOLIZUMAB
  4. VEDOLIZUMAB [Suspect]
     Active Substance: VEDOLIZUMAB
  5. VEDOLIZUMAB [Suspect]
     Active Substance: VEDOLIZUMAB
  6. VEDOLIZUMAB [Suspect]
     Active Substance: VEDOLIZUMAB
  7. VEDOLIZUMAB [Suspect]
     Active Substance: VEDOLIZUMAB
  8. VEDOLIZUMAB [Suspect]
     Active Substance: VEDOLIZUMAB
  9. VEDOLIZUMAB [Suspect]
     Active Substance: VEDOLIZUMAB
  10. VEDOLIZUMAB [Suspect]
     Active Substance: VEDOLIZUMAB
  11. VEDOLIZUMAB [Suspect]
     Active Substance: VEDOLIZUMAB
  12. DEXILANT [Suspect]
     Active Substance: DEXLANSOPRAZOLE
     Indication: Product used for unknown indication
  13. FERROUS SULFATE [Concomitant]
     Active Substance: FERROUS SULFATE
  14. CITALOPRAM [Concomitant]
     Active Substance: CITALOPRAM
  15. ASPIRIN [Concomitant]
     Active Substance: ASPIRIN
  16. SYNTHROID [Concomitant]
     Active Substance: LEVOTHYROXINE SODIUM
  17. TOLTERODINE [Concomitant]
     Active Substance: TOLTERODINE
  18. LORAZEPAM [Concomitant]
     Active Substance: LORAZEPAM
  19. ATORVASTATIN [Concomitant]
     Active Substance: ATORVASTATIN
  20. VITAMIN D [Concomitant]
     Active Substance: VITAMIN D NOS
  21. ENTOCORT [Concomitant]
     Active Substance: BUDESONIDE
  22. IRON [Concomitant]
     Active Substance: IRON
     Dosage: 300 MILLIGRAM, BID

REACTIONS (14)
  - Lung carcinoma cell type unspecified stage IV [Unknown]
  - Diverticulitis [Recovered/Resolved]
  - Pulmonary mass [Not Recovered/Not Resolved]
  - Rectal haemorrhage [Recovered/Resolved]
  - Gastroenteritis [Unknown]
  - Pneumonia [Not Recovered/Not Resolved]
  - Anal incontinence [Unknown]
  - Diarrhoea [Unknown]
  - Frequent bowel movements [Unknown]
  - Faeces discoloured [Unknown]
  - Abdominal pain [Unknown]
  - Asthenia [Unknown]
  - Vomiting [Not Recovered/Not Resolved]
  - Dyspepsia [Recovered/Resolved]

NARRATIVE: CASE EVENT DATE: 20180101
